FAERS Safety Report 7157171-6 (Version None)
Quarter: 2010Q4

REPORT INFORMATION
  Report Type: 
  Country: None (occurrence: None)
  Receive Date: 20101214
  Receipt Date: 20100212
  Transmission Date: 20110411
  Serious: No
  Sender: FDA-Public Use
  Company Number: US-ASTRAZENECA-2009SE33134

PATIENT
  Age: 69 Year
  Sex: Female
  Weight: 65.3 kg

DRUGS (3)
  1. CRESTOR [Suspect]
     Indication: BLOOD CHOLESTEROL INCREASED
     Route: 048
     Dates: start: 20091115
  2. COMPOUNDED PROGESTERONE AND ESTROGEN CREAM [Concomitant]
  3. COMPOUNDED THYROID [Concomitant]

REACTIONS (3)
  - CARDIAC FLUTTER [None]
  - MEDICATION ERROR [None]
  - MUSCLE SPASMS [None]
